FAERS Safety Report 8455702-7 (Version None)
Quarter: 2012Q2

REPORT INFORMATION
  Report Type: 
  Country: None (occurrence: None)
  Receive Date: 20120613
  Receipt Date: 20120604
  Transmission Date: 20120825
  Serious: Yes (Hospitalization)
  Sender: FDA-Public Use
  Company Number: 2012SP030756

PATIENT
  Age: 46 Year
  Sex: Male
  Weight: 81 kg

DRUGS (10)
  1. PEG-INTRON [Suspect]
     Indication: HEPATITIS C
     Dosage: 1.5 MCG/KG;QW;SC
     Route: 058
     Dates: start: 20120216
  2. DEPAKENE [Concomitant]
  3. XYZAL [Concomitant]
  4. ANTEBATE [Concomitant]
  5. REBETOL [Suspect]
     Indication: HEPATITIS C
     Dosage: 800 MG;QD;PO
     Route: 048
     Dates: start: 20120216
  6. ROHYPNOL [Concomitant]
  7. HIRUDOID SOFT [Concomitant]
  8. ALLOPURINOL [Concomitant]
  9. LENDORMIN [Concomitant]
  10. TELAVIC (ANTIVIRALS NOS) [Suspect]
     Indication: HEPATITIS C
     Dosage: 2250 MG;QD;PO
     Route: 048
     Dates: start: 20120216, end: 20120509

REACTIONS (2)
  - TOXIC SKIN ERUPTION [None]
  - BLOOD CREATINE PHOSPHOKINASE INCREASED [None]
